FAERS Safety Report 23947163 (Version 2)
Quarter: 2024Q3

REPORT INFORMATION
  Report Type: Spontaneous
  Country: US (occurrence: US)
  Receive Date: 20240606
  Receipt Date: 20240703
  Transmission Date: 20241017
  Serious: Yes (Death, Congenital Anomaly)
  Sender: BIOGEN
  Company Number: US-BIOGEN-2024BI01267122

PATIENT
  Sex: Female

DRUGS (1)
  1. VUMERITY [Suspect]
     Active Substance: DIROXIMEL FUMARATE
     Indication: Maternal exposure timing unspecified
     Route: 050
     Dates: start: 202207, end: 20230911

REACTIONS (3)
  - Abortion spontaneous [Fatal]
  - Limb reduction defect [Unknown]
  - Foetal exposure during pregnancy [Recovered/Resolved]
